FAERS Safety Report 16049251 (Version 2)
Quarter: 2019Q1

REPORT INFORMATION
  Report Type: Spontaneous
  Country: US (occurrence: US)
  Receive Date: 20190307
  Receipt Date: 20190313
  Transmission Date: 20190418
  Serious: Yes (Other)
  Sender: FDA-Public Use
  Company Number: US-ASTRAZENECA-2018SF33937

PATIENT
  Age: 20509 Day
  Sex: Female

DRUGS (36)
  1. PROTONIX [Suspect]
     Active Substance: PANTOPRAZOLE SODIUM
     Route: 048
     Dates: start: 20060101, end: 20111231
  2. HYDROCHLOROTHIAZIDE. [Concomitant]
     Active Substance: HYDROCHLOROTHIAZIDE
  3. NITROFURANTOIN. [Concomitant]
     Active Substance: NITROFURANTOIN
  4. ASPIRIN. [Concomitant]
     Active Substance: ASPIRIN
  5. LINEZOLID. [Concomitant]
     Active Substance: LINEZOLID
  6. LISINOPRIL. [Concomitant]
     Active Substance: LISINOPRIL
  7. CLINDAMYCIN HYDROCHLORIDE. [Concomitant]
     Active Substance: CLINDAMYCIN HYDROCHLORIDE
  8. CETIRIZINE [Concomitant]
     Active Substance: CETIRIZINE HYDROCHLORIDE
  9. PRILOSEC [Suspect]
     Active Substance: OMEPRAZOLE MAGNESIUM
     Route: 048
     Dates: start: 20060101, end: 20111231
  10. K-TAB [Concomitant]
     Active Substance: POTASSIUM CHLORIDE
  11. MEPERIDINE [Concomitant]
     Active Substance: MEPERIDINE
  12. NEXIUM [Concomitant]
     Active Substance: ESOMEPRAZOLE MAGNESIUM
     Route: 048
     Dates: start: 20090717
  13. CLARITHROMYCIN. [Concomitant]
     Active Substance: CLARITHROMYCIN
  14. PRAVASTATIN. [Concomitant]
     Active Substance: PRAVASTATIN
  15. ATENOLOL. [Concomitant]
     Active Substance: ATENOLOL
  16. ACIPHEX [Concomitant]
     Active Substance: RABEPRAZOLE SODIUM
  17. FLUTICASONE. [Concomitant]
     Active Substance: FLUTICASONE
  18. ZITHROMAX [Concomitant]
     Active Substance: AZITHROMYCIN DIHYDRATE
  19. PRILOSEC [Suspect]
     Active Substance: OMEPRAZOLE MAGNESIUM
     Dosage: OMEPRAZOLE
     Route: 048
     Dates: start: 20101208
  20. DARVOCET [Concomitant]
     Active Substance: ACETAMINOPHEN\PROPOXYPHENE HYDROCHLORIDE
  21. BENZONATATE. [Concomitant]
     Active Substance: BENZONATATE
  22. AMITRIPTYLINE [Concomitant]
     Active Substance: AMITRIPTYLINE
  23. LIORESAL [Concomitant]
     Active Substance: BACLOFEN
  24. PROTONIX [Suspect]
     Active Substance: PANTOPRAZOLE SODIUM
     Dosage: PANTOPRAZOLE-TAKE 1 TABLET ORALLY TWICE DAILY
     Route: 048
     Dates: start: 20130624
  25. NOVOLIN N [Concomitant]
     Active Substance: INSULIN HUMAN
  26. FAMOTIDINE. [Concomitant]
     Active Substance: FAMOTIDINE
  27. OCUFLOX [Concomitant]
     Active Substance: OFLOXACIN
  28. METOCLOPRAMIDE. [Concomitant]
     Active Substance: METOCLOPRAMIDE
  29. SPIRONOLACTONE. [Concomitant]
     Active Substance: SPIRONOLACTONE
  30. LOVASTATIN. [Concomitant]
     Active Substance: LOVASTATIN
  31. PREDNISONE. [Concomitant]
     Active Substance: PREDNISONE
  32. MIRENA [Concomitant]
     Active Substance: LEVONORGESTREL
  33. HYDROCODONE-ACETAMINOPHEN [Concomitant]
     Active Substance: ACETAMINOPHEN\HYDROCODONE
  34. GLYBURIDE. [Concomitant]
     Active Substance: GLYBURIDE
  35. VESICARE [Concomitant]
     Active Substance: SOLIFENACIN SUCCINATE
  36. PRILOSEC [Suspect]
     Active Substance: OMEPRAZOLE MAGNESIUM
     Route: 048
     Dates: start: 20160121

REACTIONS (2)
  - Chronic kidney disease [Unknown]
  - Renal injury [Unknown]

NARRATIVE: CASE EVENT DATE: 20160407
